FAERS Safety Report 18546996 (Version 1)
Quarter: 2020Q4

REPORT INFORMATION
  Report Type: Spontaneous
  Country: CN (occurrence: CN)
  Receive Date: 20201125
  Receipt Date: 20201125
  Transmission Date: 20210114
  Serious: Yes (Hospitalization)
  Sender: FDA-Public Use
  Company Number: CN-ELI_LILLY_AND_COMPANY-CN202011007930

PATIENT
  Age: 20 Year
  Sex: Female
  Weight: 50 kg

DRUGS (3)
  1. INSULIN GLARGINE [Concomitant]
     Active Substance: INSULIN GLARGINE
     Indication: DIABETES MELLITUS
     Dosage: 24 U, DAILY
     Route: 058
  2. HUMULIN R [Suspect]
     Active Substance: INSULIN HUMAN
     Dosage: 6 U, BID
     Route: 058
     Dates: start: 2014
  3. HUMULIN R [Suspect]
     Active Substance: INSULIN HUMAN
     Indication: DIABETES MELLITUS
     Dosage: 9 U, EACH MORNING
     Route: 058
     Dates: start: 2014

REACTIONS (2)
  - Blood glucose increased [Recovering/Resolving]
  - Ketosis [Recovering/Resolving]
